FAERS Safety Report 5117774-7 (Version None)
Quarter: 2006Q3

REPORT INFORMATION
  Report Type: 
  Country: None (occurrence: None)
  Receive Date: 20060926
  Receipt Date: 20060904
  Transmission Date: 20061208
  Serious: Yes (Hospitalization)
  Sender: FDA-Public Use
  Company Number: AU200605002216

PATIENT
  Age: 80 Year
  Sex: Female

DRUGS (6)
  1. EVISTA [Suspect]
     Indication: OSTEOPOROSIS
     Dosage: 60 MG, DAILY (1/D)
     Dates: start: 20020101
  2. RAMIPRIL [Concomitant]
  3. SPIRONOLACTONE [Concomitant]
  4. FLOXACILLIN SODIUM [Concomitant]
  5. PROCHLORPERAZINE [Concomitant]
  6. PANAMAX (PARACETAMOL) [Concomitant]

REACTIONS (2)
  - FALL [None]
  - FEMUR FRACTURE [None]
